FAERS Safety Report 19954837 (Version 5)
Quarter: 2021Q4

REPORT INFORMATION
  Report Type: Report from Study
  Country: IL (occurrence: IL)
  Receive Date: 20211014
  Receipt Date: 20211028
  Transmission Date: 20220303
  Serious: Yes (Death, Hospitalization)
  Sender: FDA-Public Use
  Company Number: IL-EISAI MEDICAL RESEARCH-EC-2021-101283

PATIENT
  Age: 53 Year
  Sex: Male
  Weight: 63.2 kg

DRUGS (15)
  1. LENVATINIB [Suspect]
     Active Substance: LENVATINIB
     Indication: Pancreatic carcinoma
     Route: 048
     Dates: start: 20210623, end: 20210929
  2. PEMBROLIZUMAB [Suspect]
     Active Substance: PEMBROLIZUMAB
     Indication: Pancreatic carcinoma
     Route: 041
     Dates: start: 20210623, end: 20210825
  3. PEMBROLIZUMAB [Suspect]
     Active Substance: PEMBROLIZUMAB
     Route: 041
     Dates: start: 20210913, end: 20210913
  4. CIPRALEX [Concomitant]
     Active Substance: ESCITALOPRAM OXALATE
     Dates: start: 201101
  5. FENTANYL TRANSDERMAL SYSTEM [Concomitant]
     Active Substance: FENTANYL
     Dates: start: 202001
  6. AREDIA [Concomitant]
     Active Substance: PAMIDRONATE DISODIUM
     Dates: start: 20210117
  7. LOPERAMIDE [Concomitant]
     Active Substance: LOPERAMIDE
     Dates: start: 202101
  8. GELATIN [Concomitant]
     Active Substance: GELATIN
     Dates: start: 202101
  9. NORIT [Concomitant]
     Dates: start: 202101
  10. LYRICA [Concomitant]
     Active Substance: PREGABALIN
     Dates: start: 202101
  11. LORNOXICAM [Concomitant]
     Active Substance: LORNOXICAM
     Dates: start: 202101
  12. LACTULOSE [Concomitant]
     Active Substance: LACTULOSE
     Dates: start: 202101
  13. GLYCERIN [Concomitant]
     Active Substance: GLYCERIN
     Dates: start: 202101
  14. ABSTRAL [Concomitant]
     Active Substance: FENTANYL CITRATE
     Dates: start: 202101
  15. EUTHYROX [Concomitant]
     Active Substance: LEVOTHYROXINE SODIUM
     Dates: start: 20210816

REACTIONS (1)
  - Malignant neoplasm progression [Fatal]

NARRATIVE: CASE EVENT DATE: 20210930
